FAERS Safety Report 8824695 (Version 1)
Quarter: 2012Q4

REPORT INFORMATION
  Report Type: Report from Study
  Country: US (occurrence: US)
  Receive Date: 20121004
  Receipt Date: 20121004
  Transmission Date: 20130627
  Serious: Yes (Hospitalization)
  Sender: FDA-Public Use
  Company Number: US-US-EMD SERONO, INC.-7164138

PATIENT
  Age: 62 None
  Sex: Male
  Weight: 96 kg

DRUGS (3)
  1. REBIF [Suspect]
     Indication: MULTIPLE SCLEROSIS
     Route: 058
     Dates: start: 20100927
  2. RAMIPRIL [Concomitant]
     Indication: HYPERTENSION
  3. TIMOLOL [Concomitant]
     Indication: GLAUCOMA

REACTIONS (4)
  - Aortic aneurysm rupture [Recovering/Resolving]
  - Weight decreased [Not Recovered/Not Resolved]
  - Muscular weakness [Recovering/Resolving]
  - Fatigue [Not Recovered/Not Resolved]
